FAERS Safety Report 7368859-6 (Version None)
Quarter: 2011Q1

REPORT INFORMATION
  Report Type: 
  Country: None (occurrence: None)
  Receive Date: 20110308
  Receipt Date: 20110301
  Transmission Date: 20110831
  Serious: Yes (Death)
  Sender: FDA-Public Use
  Company Number: DSA_45077_2011

PATIENT
  Sex: Male

DRUGS (1)
  1. XENAZINE [Suspect]
     Indication: HUNTINGTON'S DISEASE
     Dosage: (12.5 MG 1 TAB IN AM, 1 TAB AT NOON, 2 TABS AT NIGHT ORAL)
     Route: 048
     Dates: start: 20091030

REACTIONS (1)
  - DEATH [None]
